APPROVED DRUG PRODUCT: ZARONTIN
Active Ingredient: ETHOSUXIMIDE
Strength: 250MG/5ML
Dosage Form/Route: SYRUP;ORAL
Application: A080258 | Product #001 | TE Code: AA
Applicant: PARKE-DAVIS DIVISION OF PFIZER INC
Approved: Approved Prior to Jan 1, 1982 | RLD: Yes | RS: Yes | Type: RX